FAERS Safety Report 7769677-7 (Version None)
Quarter: 2011Q3

REPORT INFORMATION
  Report Type: 
  Country: None (occurrence: None)
  Receive Date: 20110920
  Receipt Date: 20110907
  Transmission Date: 20111222
  Serious: Yes (Hospitalization, Other)
  Sender: FDA-Public Use
  Company Number: IMP_05425_2011

PATIENT
  Age: 72 Year
  Sex: Male

DRUGS (3)
  1. CLOZAPINE [Suspect]
     Dosage: (25 MG, DAILY DOSE)
  2. CARBIDOPA + LEVODOPA [Suspect]
     Indication: PARKINSON'S DISEASE
     Dosage: (110 MG TID, LEVODOPA 100MG + CARBIDOPA 10MG)
  3. PROPRANOLOL [Concomitant]

REACTIONS (6)
  - SOMNOLENCE [None]
  - DROOLING [None]
  - HALLUCINATION, AUDITORY [None]
  - INSOMNIA [None]
  - PERSECUTORY DELUSION [None]
  - HALLUCINATION, VISUAL [None]
